FAERS Safety Report 7443578-6 (Version None)
Quarter: 2011Q2

REPORT INFORMATION
  Report Type: 
  Country: None (occurrence: None)
  Receive Date: 20110428
  Receipt Date: 20110411
  Transmission Date: 20111010
  Serious: No
  Sender: FDA-Public Use
  Company Number: US-B.I. PHARMACEUTICALS,INC./RIDGEFIELD-2011-BP-10432BP

PATIENT
  Age: 53 Year
  Sex: Male

DRUGS (5)
  1. FENTANYL-100 [Concomitant]
     Indication: PAIN
  2. PRISTIQ [Concomitant]
     Indication: DEPRESSION
  3. MIRAPEX [Suspect]
     Indication: RESTLESS LEGS SYNDROME
     Dosage: 0.75 MG
     Route: 048
     Dates: start: 20110201
  4. SOMA [Concomitant]
     Indication: PAIN
  5. PERCOCET [Concomitant]
     Indication: PAIN

REACTIONS (1)
  - URINE CANNABINOIDS INCREASED [None]
